FAERS Safety Report 15621222 (Version 1)
Quarter: 2018Q4

REPORT INFORMATION
  Report Type: Spontaneous
  Country: DE (occurrence: DE)
  Receive Date: 20181115
  Receipt Date: 20181115
  Transmission Date: 20190205
  Serious: Yes (Hospitalization, Other)
  Sender: FDA-Public Use
  Company Number: PHHY2018DE152309

PATIENT
  Sex: Female

DRUGS (1)
  1. VOTRIENT [Suspect]
     Active Substance: PAZOPANIB HYDROCHLORIDE
     Indication: PRODUCT USED FOR UNKNOWN INDICATION
     Dosage: 400 MG, QD
     Route: 065

REACTIONS (7)
  - Hallucination [Unknown]
  - Hypothyroidism [Recovering/Resolving]
  - Fall [Unknown]
  - Cerebral haemorrhage [Unknown]
  - Seizure [Unknown]
  - Hyperthyroidism [Unknown]
  - Weight increased [Unknown]
